FAERS Safety Report 7467243-4 (Version None)
Quarter: 2011Q2

REPORT INFORMATION
  Report Type: 
  Country: None (occurrence: None)
  Receive Date: 20110509
  Receipt Date: 20110502
  Transmission Date: 20111010
  Serious: Yes (Hospitalization)
  Sender: FDA-Public Use
  Company Number: PHHY2011BR37972

PATIENT
  Sex: Male

DRUGS (1)
  1. EXFORGE HCT [Suspect]
     Indication: HYPERTENSION
     Dosage: 160 MG VALS, 5 MG AMLO AND 12.5 MG HCT, 2 TABLETS ONCE DAILY
     Route: 048

REACTIONS (2)
  - DENGUE FEVER [None]
  - PLATELET COUNT DECREASED [None]
